FAERS Safety Report 15609917 (Version 1)
Quarter: 2018Q4

REPORT INFORMATION
  Report Type: Spontaneous
  Country: RO (occurrence: RO)
  Receive Date: 20181113
  Receipt Date: 20181113
  Transmission Date: 20190205
  Serious: Yes (Death, Other)
  Sender: FDA-Public Use
  Company Number: RO-ACCORD-091306

PATIENT
  Age: 61 Year
  Sex: Female
  Weight: 93 kg

DRUGS (13)
  1. DEXAMETHASONE. [Suspect]
     Active Substance: DEXAMETHASONE
     Indication: PRODUCT USED FOR UNKNOWN INDICATION
     Dosage: HYPER CVAD PROTOCOL
     Dates: start: 20180109
  2. DOXORUBICIN [Suspect]
     Active Substance: DOXORUBICIN
     Indication: PRODUCT USED FOR UNKNOWN INDICATION
     Dosage: HYPER CVAD PROTOCOL
     Route: 065
  3. METHYLPREDNISOLONE. [Suspect]
     Active Substance: METHYLPREDNISOLONE
     Indication: PRODUCT USED FOR UNKNOWN INDICATION
     Dosage: HYPER CVAD PROTOCOL
     Route: 065
  4. CYTARABINE/CYTARABINE HYDROCHLORIDE/CYTARABINE OCFOSFATE [Suspect]
     Active Substance: CYTARABINE
     Indication: PRODUCT USED FOR UNKNOWN INDICATION
     Dosage: HYPER CVAD PROTOCOL
     Route: 065
  5. ICLUSIG [Suspect]
     Active Substance: PONATINIB
     Indication: ACUTE LYMPHOCYTIC LEUKAEMIA
     Dosage: 45 MILLIGRAM DAILY;
     Route: 048
     Dates: start: 20170905, end: 20180112
  6. CEFTAMIL [Suspect]
     Active Substance: CEFTAZIDIME
     Indication: SKIN INFECTION
     Dosage: 1 G, UNK
     Route: 042
     Dates: start: 20180112, end: 20180113
  7. VINCRISTINE [Suspect]
     Active Substance: VINCRISTINE
     Indication: PRODUCT USED FOR UNKNOWN INDICATION
     Dosage: HYPER CVAD PROTOCOL
     Route: 065
  8. TARGOCID [Concomitant]
     Active Substance: TEICOPLANIN
  9. METHOTREXATE. [Suspect]
     Active Substance: METHOTREXATE
     Indication: PRODUCT USED FOR UNKNOWN INDICATION
     Dosage: HYPER CVAD PROTOCOL
     Route: 065
  10. FOLINIC ACID [Suspect]
     Active Substance: LEUCOVORIN
     Indication: PRODUCT USED FOR UNKNOWN INDICATION
     Dosage: HYPER CVAD PROTOCOL
     Route: 065
  11. CYTOSAR [Concomitant]
     Active Substance: CYTARABINE
     Dates: start: 20180110, end: 20180111
  12. GRANULOCYTE COLONY STIMULATING [Concomitant]
     Active Substance: GRANULOCYTE COLONY-STIMULATING FACTOR NOS
  13. CYCLOPHOSPHAMIDE/CYCLOPHOSPHAMIDE MONOHYDRATE [Suspect]
     Active Substance: CYCLOPHOSPHAMIDE
     Indication: PRODUCT USED FOR UNKNOWN INDICATION
     Dosage: HYPER CVAD PROTOCOL
     Route: 065

REACTIONS (4)
  - Rash [Recovering/Resolving]
  - Septic shock [Fatal]
  - Dermatitis bullous [Fatal]
  - Staphylococcal sepsis [Fatal]

NARRATIVE: CASE EVENT DATE: 20170920
